FAERS Safety Report 13234272 (Version 1)
Quarter: 2017Q1

REPORT INFORMATION
  Report Type: Spontaneous
  Country: US (occurrence: US)
  Receive Date: 20170215
  Receipt Date: 20170215
  Transmission Date: 20170428
  Serious: Yes (Hospitalization)
  Sender: FDA-Public Use
  Company Number: None

PATIENT
  Sex: Male

DRUGS (1)
  1. ISOVUE 370 [Suspect]
     Active Substance: IOPAMIDOL

REACTIONS (4)
  - Pruritus [None]
  - Sneezing [None]
  - Erythema [None]
  - Contrast media allergy [None]

NARRATIVE: CASE EVENT DATE: 20161212
